FAERS Safety Report 25680035 (Version 1)
Quarter: 2025Q3

REPORT INFORMATION
  Report Type: Spontaneous
  Country: US (occurrence: US)
  Receive Date: 20250814
  Receipt Date: 20250814
  Transmission Date: 20251020
  Serious: Yes (Hospitalization, Other)
  Sender: ZYDUS PHARM
  Company Number: US-CADILA HEALTHCARE LIMITED-US-ZYDUS-127043

PATIENT

DRUGS (5)
  1. BUPROPION [Suspect]
     Active Substance: BUPROPION
     Indication: Suicide attempt
     Route: 065
  2. TRAZODONE [Suspect]
     Active Substance: TRAZODONE HYDROCHLORIDE
     Indication: Suicide attempt
     Route: 065
  3. CITALOPRAM [Suspect]
     Active Substance: CITALOPRAM
     Indication: Suicide attempt
     Route: 065
  4. PROPOFOL [Concomitant]
     Active Substance: PROPOFOL
     Indication: Sedation
     Route: 065
  5. PROPOFOL [Concomitant]
     Active Substance: PROPOFOL
     Indication: Seizure

REACTIONS (7)
  - Electrocardiogram QRS complex prolonged [Recovering/Resolving]
  - Electrocardiogram PR prolongation [Recovering/Resolving]
  - Systolic dysfunction [Recovered/Resolved]
  - Electrocardiogram QT prolonged [Recovering/Resolving]
  - Ejection fraction decreased [Recovering/Resolving]
  - Hypotension [Recovered/Resolved]
  - Intentional overdose [Unknown]
